FAERS Safety Report 21633169 (Version 2)
Quarter: 2023Q1

REPORT INFORMATION
  Report Type: Report from Study
  Country: CN (occurrence: CN)
  Receive Date: 20221123
  Receipt Date: 20230206
  Transmission Date: 20230418
  Serious: Yes (Other)
  Sender: FDA-Public Use
  Company Number: CN-UCBSA-2022065905

PATIENT
  Sex: Male
  Weight: 26 kg

DRUGS (7)
  1. LACOSAMIDE [Suspect]
     Active Substance: LACOSAMIDE
     Indication: Product used for unknown indication
     Dosage: 25MG DAILY
     Dates: start: 20220420, end: 20220426
  2. LACOSAMIDE [Suspect]
     Active Substance: LACOSAMIDE
     Dosage: 50MG DAILY
     Dates: start: 20220427, end: 20220502
  3. LACOSAMIDE [Suspect]
     Active Substance: LACOSAMIDE
     Dosage: 75MG DAILY
     Dates: start: 20220503, end: 20220509
  4. LACOSAMIDE [Suspect]
     Active Substance: LACOSAMIDE
     Dosage: 100MG DAILY
     Dates: start: 20220510, end: 20220515
  5. LACOSAMIDE [Suspect]
     Active Substance: LACOSAMIDE
     Dosage: 50MG DAILY
     Dates: start: 20220516, end: 20220718
  6. VALPROIC ACID [Concomitant]
     Active Substance: VALPROIC ACID
     Indication: Epilepsy
     Dosage: 5 MILLILITER EVERY MORNING
     Dates: start: 20210910
  7. VALPROIC ACID [Concomitant]
     Active Substance: VALPROIC ACID
     Dosage: 7 MILLILITER EVERY NIGHT
     Dates: start: 20210910

REACTIONS (5)
  - Pneumatosis intestinalis [Unknown]
  - Upper respiratory tract infection [Unknown]
  - Abdominal pain [Unknown]
  - Diarrhoea [Unknown]
  - Underdose [Unknown]

NARRATIVE: CASE EVENT DATE: 20220420
